FAERS Safety Report 18479168 (Version 2)
Quarter: 2021Q2

REPORT INFORMATION
  Report Type: Report from Study
  Country: US (occurrence: US)
  Receive Date: 20201109
  Receipt Date: 20210611
  Transmission Date: 20210717
  Serious: Yes (Hospitalization)
  Sender: FDA-Public Use
  Company Number: NVSC2020US298519

PATIENT

DRUGS (11)
  1. METHOTREXATE. [Suspect]
     Active Substance: METHOTREXATE
     Dosage: 15 MILLIGRAM MC2D1
     Route: 048
     Dates: start: 20201116
  2. VINCRISTINE [Suspect]
     Active Substance: VINCRISTINE
     Dosage: 2 MILLIGRAM MC2D1
     Route: 042
     Dates: start: 20201109
  3. INC424A [Suspect]
     Active Substance: RUXOLITINIB
     Dosage: 85 MG, BID MC2D8?14
     Route: 048
     Dates: start: 20201208
  4. INC424A [Suspect]
     Active Substance: RUXOLITINIB
     Indication: ACUTE LYMPHOCYTIC LEUKAEMIA
     Dosage: 85 MG, BID MC2D8?14
     Route: 048
     Dates: start: 20201013, end: 20201103
  5. METHOTREXATE. [Suspect]
     Active Substance: METHOTREXATE
     Indication: ACUTE LYMPHOCYTIC LEUKAEMIA
     Dosage: 15 MILLIGRAM MC2D1
     Route: 037
     Dates: start: 20201006, end: 20201103
  6. MERCAPTOPURINE. [Suspect]
     Active Substance: MERCAPTOPURINE
     Dosage: 64MG QD MC2D8?23
     Route: 048
     Dates: start: 20201116
  7. VINCRISTINE [Suspect]
     Active Substance: VINCRISTINE
     Indication: ACUTE LYMPHOCYTIC LEUKAEMIA
     Dosage: 2 MILLIGRAM MC2D1
     Route: 042
     Dates: start: 20201006, end: 20201103
  8. MERCAPTOPURINE. [Suspect]
     Active Substance: MERCAPTOPURINE
     Indication: ACUTE LYMPHOCYTIC LEUKAEMIA
     Dosage: 64MG QD MC2D8?23
     Route: 048
     Dates: start: 20201013, end: 20201028
  9. PREDNISONE. [Suspect]
     Active Substance: PREDNISONE
     Dosage: 35 MG, BID MC2D1?5
     Route: 048
     Dates: start: 20201109
  10. SODIUM CHLORIDE. [Concomitant]
     Active Substance: SODIUM CHLORIDE
     Indication: PRODUCT USED FOR UNKNOWN INDICATION
     Dosage: UNK
     Route: 065
     Dates: start: 20201029
  11. PREDNISONE. [Suspect]
     Active Substance: PREDNISONE
     Indication: ACUTE LYMPHOCYTIC LEUKAEMIA
     Dosage: 35 MG, BID MC2D1?5
     Route: 048
     Dates: start: 20201006, end: 20201103

REACTIONS (1)
  - Herpes zoster [Recovered/Resolved]

NARRATIVE: CASE EVENT DATE: 20201028
